FAERS Safety Report 11632166 (Version 1)
Quarter: 2015Q4

REPORT INFORMATION
  Report Type: Spontaneous
  Country: US (occurrence: None)
  Receive Date: 20151014
  Receipt Date: 20151014
  Transmission Date: 20160304
  Serious: Yes (Death)
  Sender: FDA-Public Use
  Company Number: None

PATIENT

DRUGS (11)
  1. FUROSEMIDE. [Concomitant]
     Active Substance: FUROSEMIDE
  2. METOPROLOL [Concomitant]
     Active Substance: METOPROLOL
  3. VERAPAMIL [Concomitant]
     Active Substance: VERAPAMIL HYDROCHLORIDE
  4. OMEPRAZOLE. [Concomitant]
     Active Substance: OMEPRAZOLE
  5. LEVOTHYROXINE. [Concomitant]
     Active Substance: LEVOTHYROXINE
  6. TAMSULOSIN [Concomitant]
     Active Substance: TAMSULOSIN
  7. HYDROXYZINE [Concomitant]
     Active Substance: HYDROXYZINE\HYDROXYZINE HYDROCHLORIDE
  8. PROBENECID. [Concomitant]
     Active Substance: PROBENECID
  9. XARELTO [Suspect]
     Active Substance: RIVAROXABAN
     Indication: ATRIAL FIBRILLATION
     Route: 048
     Dates: start: 20150101, end: 20150928
  10. CEPHALEXIN. [Concomitant]
     Active Substance: CEPHALEXIN
  11. RIVAROXABAN [Concomitant]
     Active Substance: RIVAROXABAN

REACTIONS (4)
  - Brain stem haemorrhage [None]
  - Intraventricular haemorrhage [None]
  - Haemorrhage intracranial [None]
  - Thalamus haemorrhage [None]

NARRATIVE: CASE EVENT DATE: 20150927
